FAERS Safety Report 10377293 (Version 1)
Quarter: 2014Q3

REPORT INFORMATION
  Report Type: Spontaneous
  Country: JP (occurrence: JP)
  Receive Date: 20140812
  Receipt Date: 20140812
  Transmission Date: 20150326
  Serious: Yes (Death, Other)
  Sender: FDA-Public Use
  Company Number: PHHY2008JP045210

PATIENT
  Age: 85 Year
  Sex: Male

DRUGS (1)
  1. GLIVEC [Suspect]
     Active Substance: IMATINIB MESYLATE
     Indication: CHRONIC MYELOID LEUKAEMIA

REACTIONS (5)
  - Second primary malignancy [Unknown]
  - Malignant neoplasm progression [Fatal]
  - Colorectal cancer [Unknown]
  - Chronic myeloid leukaemia [Fatal]
  - Pleural effusion [Unknown]
